FAERS Safety Report 7480725-4 (Version None)
Quarter: 2011Q2

REPORT INFORMATION
  Report Type: 
  Country: None (occurrence: None)
  Receive Date: 20110506
  Receipt Date: 20110426
  Transmission Date: 20111010
  Serious: Yes (Hospitalization)
  Sender: FDA-Public Use
  Company Number: 2011MA004268

PATIENT
  Age: 65 Year
  Sex: Male

DRUGS (5)
  1. HYDROCORTISONE 2.5% CREAM [Suspect]
     Indication: COLITIS ULCERATIVE
     Dosage: 100 MG; QID;IV
     Route: 042
     Dates: start: 20110308, end: 20110314
  2. ADCAL-D3 [Concomitant]
  3. REMICADE [Suspect]
     Indication: COLITIS ULCERATIVE
     Dosage: 200 MG; IV
     Route: 042
     Dates: start: 20110311, end: 20110311
  4. MESALAMINE [Concomitant]
  5. MESALAMINE [Concomitant]

REACTIONS (1)
  - PNEUMONIA [None]
